FAERS Safety Report 9210880 (Version 1)
Quarter: 2013Q2

REPORT INFORMATION
  Report Type: Spontaneous
  Country: US (occurrence: US)
  Receive Date: 20130404
  Receipt Date: 20130404
  Transmission Date: 20140414
  Serious: Yes (Other)
  Sender: FDA-Public Use
  Company Number: CHPA2013US005596

PATIENT
  Age: 71 Year
  Sex: Female

DRUGS (12)
  1. VOLTAREN GEL [Suspect]
     Indication: MUSCULOSKELETAL PAIN
     Dosage: UNK, QID
     Route: 061
  2. VOLTAREN GEL [Suspect]
     Dosage: UNK, BID
     Route: 061
  3. SIMVASTATIN [Concomitant]
  4. PLAVIX [Concomitant]
  5. PANTOPRAZOLE [Concomitant]
     Indication: ABDOMINAL DISCOMFORT
  6. POTASSIUM [Concomitant]
  7. VITAMIN D3 [Concomitant]
  8. LEVOTHYROXINE [Concomitant]
     Indication: THYROID DISORDER
  9. HYDROCHLOROTHIAZIDE [Concomitant]
     Indication: FLUID RETENTION
  10. CELEBREX [Concomitant]
     Indication: ARTHRITIS
  11. MORPHINE [Concomitant]
  12. OXYCODONE [Concomitant]
     Indication: BLOOD CHOLESTEROL

REACTIONS (5)
  - Musculoskeletal pain [Unknown]
  - Condition aggravated [Unknown]
  - Off label use [Unknown]
  - Therapeutic response unexpected [Unknown]
  - Drug administered at inappropriate site [Unknown]
